FAERS Safety Report 6541042-X (Version None)
Quarter: 2010Q1

REPORT INFORMATION
  Report Type: 
  Country: None (occurrence: None)
  Receive Date: 20100118
  Receipt Date: 20100105
  Transmission Date: 20100710
  Serious: Yes (Hospitalization, Other)
  Sender: FDA-Public Use
  Company Number: FR-ELI_LILLY_AND_COMPANY-FR201001000343

PATIENT
  Age: 43 Year
  Sex: Female

DRUGS (17)
  1. GEMZAR [Suspect]
     Route: 042
     Dates: start: 20090707
  2. CISPLATIN [Concomitant]
     Route: 042
     Dates: start: 20090707
  3. AVASTIN [Concomitant]
     Route: 042
     Dates: start: 20090707
  4. SOLUPRED [Concomitant]
     Dosage: 20 MG, DAILY (1/D)
     Route: 048
  5. SEROPLEX [Concomitant]
     Dosage: 10 MG, DAILY (1/D)
  6. LEXOMIL [Concomitant]
     Dosage: 0.5 D/F, EACH EVENING
     Route: 048
  7. LEXOMIL [Concomitant]
     Dosage: 0.25 D/F, AS NEEDED
     Route: 048
  8. TARDYFERON [Concomitant]
     Dosage: 80 MG, DAILY (1/D)
     Route: 048
  9. INIPOMP [Concomitant]
     Dosage: 20 MG, DAILY (1/D)
  10. MUTESA [Concomitant]
     Dosage: 1 D/F, DAILY (1/D)
  11. DUPHALAC [Concomitant]
     Indication: DIARRHOEA
     Dosage: UNK, AS NEEDED
  12. LANSOYL [Concomitant]
     Indication: DIARRHOEA
     Dosage: UNK, AS NEEDED
  13. EPREX [Concomitant]
     Dosage: 40000 IU, WEEKLY (1/W)
  14. PRIMPERAN /00041901/ [Concomitant]
     Indication: NAUSEA
     Dosage: 10 MG, AS NEEDED
  15. ACTISKENAN [Concomitant]
     Dosage: 20 MG, EVERY 6 HRS AS NEEDED
  16. SKENAN [Concomitant]
     Dosage: 60 MG, 2/D
     Route: 048
  17. ACETAMINOPHEN [Concomitant]
     Dosage: 1 G, 3/D AS NEEDED

REACTIONS (6)
  - CYSTITIS [None]
  - DEEP VEIN THROMBOSIS [None]
  - DRUG INTERACTION [None]
  - DYSURIA [None]
  - INTERNATIONAL NORMALISED RATIO INCREASED [None]
  - VOMITING [None]
